FAERS Safety Report 6019579-1 (Version None)
Quarter: 2008Q4

REPORT INFORMATION
  Report Type: 
  Country: None (occurrence: None)
  Receive Date: 20081224
  Receipt Date: 20081215
  Transmission Date: 20090506
  Serious: Yes (Hospitalization, Other)
  Sender: FDA-Public Use
  Company Number: PHHY2008JP32932

PATIENT
  Sex: Male
  Weight: 84 kg

DRUGS (10)
  1. DIOVAN [Suspect]
     Indication: HYPERTENSION
     Dosage: 80 UNK, UNK
     Route: 048
     Dates: start: 20071004
  2. AMLODIN [Concomitant]
     Indication: HYPERTENSION
     Dosage: UNK
     Route: 048
     Dates: start: 20071004
  3. ARTIST [Concomitant]
     Indication: HYPERTENSION
     Dosage: 10 MG, UNK
     Route: 048
     Dates: start: 20071004
  4. NORMONAL [Concomitant]
     Indication: HYPERTENSION
     Dosage: 15 MG, UNK
     Dates: start: 20071004
  5. CARDENALIN [Concomitant]
     Indication: HYPERTENSION
     Dosage: 1 MG, UNK
     Route: 048
     Dates: start: 20071004
  6. AMARYL [Concomitant]
     Dosage: 3 MG
     Route: 048
     Dates: start: 20071004
  7. AMARYL [Concomitant]
     Dosage: 2 MG
     Route: 048
  8. PANALDINE [Concomitant]
     Dosage: 200 MG
     Route: 048
     Dates: start: 20080204, end: 20081005
  9. PLAVIX [Concomitant]
     Dosage: 75 MG, UNK
     Route: 048
     Dates: start: 20071006
  10. NITRODERM [Concomitant]
     Dosage: 25 MG
     Route: 048
     Dates: start: 20081004

REACTIONS (8)
  - ANGINA PECTORIS [None]
  - BIOPSY PROSTATE [None]
  - CEREBRAL INFARCTION [None]
  - CORONARY ARTERY OCCLUSION [None]
  - ELECTROCARDIOGRAM ABNORMAL [None]
  - MONOPLEGIA [None]
  - PROSTATIC SPECIFIC ANTIGEN INCREASED [None]
  - STENT PLACEMENT [None]
